FAERS Safety Report 7383477-1 (Version None)
Quarter: 2011Q1

REPORT INFORMATION
  Report Type: 
  Country: None (occurrence: None)
  Receive Date: 20110330
  Receipt Date: 20110317
  Transmission Date: 20110831
  Serious: Yes (Hospitalization)
  Sender: FDA-Public Use
  Company Number: US-CELGENEUS-163-21880-11011642

PATIENT
  Sex: Female

DRUGS (18)
  1. COUMADIN [Concomitant]
     Dosage: 3 MILLIGRAM
     Route: 065
  2. FENTANYL [Concomitant]
     Dosage: 50 MICROGRAM
     Route: 062
  3. FUROSEMIDE [Concomitant]
     Dosage: 40 MILLIGRAM
     Route: 048
  4. ATENOLOL [Concomitant]
     Dosage: 50 MILLIGRAM
     Route: 048
  5. HYDROMORPHONE HCL [Concomitant]
     Indication: PAIN
     Dosage: 4 MILLIGRAM
     Route: 048
  6. ZANAFLEX [Concomitant]
     Dosage: 4 MILLIGRAM
     Route: 048
  7. REVLIMID [Suspect]
     Indication: MULTIPLE MYELOMA
     Dosage: 5 MILLIGRAM
     Route: 048
     Dates: start: 20100310
  8. CLINDAMYCIN HCL [Concomitant]
     Dosage: 150 MILLIGRAM
     Route: 048
  9. REVLIMID [Suspect]
     Dosage: 5 MILLIGRAM
     Route: 048
     Dates: start: 20110301
  10. MIRALAX [Concomitant]
     Dosage: 17 GRAM
     Route: 065
  11. DEXLANSOPRAZOLE [Concomitant]
     Dosage: 30 MILLIGRAM
     Route: 048
  12. WHOLE BLOOD [Concomitant]
     Route: 051
     Dates: start: 20101201
  13. PROTONIX [Concomitant]
     Dosage: 40 MILLIGRAM
     Route: 048
  14. REVLIMID [Suspect]
     Dosage: 15 MILLIGRAM
     Route: 048
     Dates: start: 20100901, end: 20101216
  15. LOVENOX [Concomitant]
     Route: 065
  16. MORPHINE [Concomitant]
     Route: 058
  17. POTASSIUM CHLORIDE [Concomitant]
     Route: 051
  18. VALTREX [Concomitant]
     Indication: HERPES ZOSTER
     Dosage: 500 MILLIGRAM/MILLILITERS
     Route: 065

REACTIONS (1)
  - LOWER LIMB FRACTURE [None]
